FAERS Safety Report 24402777 (Version 2)
Quarter: 2024Q4

REPORT INFORMATION
  Report Type: Spontaneous
  Country: US (occurrence: US)
  Receive Date: 20241007
  Receipt Date: 20241030
  Transmission Date: 20250114
  Serious: No
  Sender: BRISTOL-MYERS SQUIBB COMPANY
  Company Number: US-BRISTOL-MYERS SQUIBB COMPANY-2024-156883

PATIENT
  Age: 80 Year
  Sex: Male

DRUGS (1)
  1. LENALIDOMIDE [Suspect]
     Active Substance: LENALIDOMIDE
     Indication: Malignant histiocytosis
     Dosage: TAKE 1 CAPSULE EVERY DAY FOR 21 DAYS
     Route: 048

REACTIONS (2)
  - Fatigue [Recovering/Resolving]
  - Product dose omission issue [Unknown]
